FAERS Safety Report 4600276-1 (Version None)
Quarter: 2005Q1

REPORT INFORMATION
  Report Type: 
  Country: None (occurrence: None)
  Receive Date: 20050307
  Receipt Date: 20050302
  Transmission Date: 20050727
  Serious: Yes (Life-Threatening)
  Sender: FDA-Public Use
  Company Number: DE-GLAXOSMITHKLINE-D0046030A

PATIENT
  Age: 52 Year
  Sex: Male
  Weight: 105.6 kg

DRUGS (2)
  1. ZYBAN [Suspect]
     Indication: SMOKING CESSATION THERAPY
     Dosage: 150MG PER DAY
     Route: 048
  2. SIMVASTATIN [Concomitant]
     Dosage: 10MG PER DAY
     Route: 048

REACTIONS (2)
  - CARDIAC FAILURE [None]
  - SUPRAVENTRICULAR TACHYCARDIA [None]
